FAERS Safety Report 24830153 (Version 1)
Quarter: 2025Q1

REPORT INFORMATION
  Report Type: Spontaneous
  Country: US (occurrence: None)
  Receive Date: 20250110
  Receipt Date: 20250110
  Transmission Date: 20250408
  Serious: Yes (Hospitalization)
  Sender: FDA-CTU
  Company Number: None

PATIENT
  Sex: Female
  Weight: 83 kg

DRUGS (3)
  1. DARATUMUMAB\HYALURONIDASE-FIHJ [Suspect]
     Active Substance: DARATUMUMAB\HYALURONIDASE-FIHJ
     Dates: end: 20240926
  2. LENALIDOMIDE [Suspect]
     Active Substance: LENALIDOMIDE
     Dates: end: 20241010
  3. VELCADE [Suspect]
     Active Substance: BORTEZOMIB
     Dates: end: 20241010

REACTIONS (6)
  - Human rhinovirus test positive [None]
  - Enterovirus infection [None]
  - Pneumonia [None]
  - Tachycardia [None]
  - Hypotension [None]
  - Venous thrombosis limb [None]

NARRATIVE: CASE EVENT DATE: 20241011
